FAERS Safety Report 7422716-5 (Version None)
Quarter: 2011Q2

REPORT INFORMATION
  Report Type: 
  Country: None (occurrence: None)
  Receive Date: 20110419
  Receipt Date: 20110411
  Transmission Date: 20111010
  Serious: Yes (Death, Hospitalization)
  Sender: FDA-Public Use
  Company Number: US-SANOFI-AVENTIS-2010SA029807

PATIENT
  Age: 68 Year
  Sex: Male

DRUGS (11)
  1. TAXOTERE [Suspect]
     Route: 041
     Dates: start: 20090828, end: 20090828
  2. DICLOFENAC SODIUM [Concomitant]
     Dates: start: 20100318
  3. TAXOTERE [Suspect]
     Indication: PROSTATE CANCER
     Route: 041
     Dates: start: 20100409, end: 20100409
  4. SHELCAL [Concomitant]
     Dates: start: 20100113
  5. PANTOPRAZOLE [Concomitant]
     Dates: start: 20090822
  6. BLINDED THERAPY [Suspect]
     Indication: PROSTATE CANCER
     Route: 048
     Dates: start: 20090828, end: 20100430
  7. BLINDED THERAPY [Suspect]
     Route: 048
     Dates: end: 20100430
  8. GRANISETRON HCL [Concomitant]
     Dates: start: 20100410, end: 20100412
  9. DEXAMETHASONE [Suspect]
     Indication: PREMEDICATION
     Dosage: 8 MG AT 12 HOURS, 3 HOURS AND 1 HOUR PRIOR TO DOCETAXEL INFUSION
  10. PREDNISONE [Suspect]
     Indication: PROSTATE CANCER
     Route: 048
     Dates: start: 20090828, end: 20100501
  11. IRON [Concomitant]
     Dates: start: 20091125

REACTIONS (4)
  - ASTHENIA [None]
  - DEATH [None]
  - ANAEMIA [None]
  - PAIN IN EXTREMITY [None]
